FAERS Safety Report 5313971-6 (Version None)
Quarter: 2007Q2

REPORT INFORMATION
  Report Type: 
  Country: None (occurrence: None)
  Receive Date: 20070501
  Receipt Date: 20070423
  Transmission Date: 20071010
  Serious: Yes (Hospitalization, Other)
  Sender: FDA-Public Use
  Company Number: US-PFIZER INC-2007002884

PATIENT
  Sex: Female
  Weight: 53.5 kg

DRUGS (4)
  1. ZOLOFT [Suspect]
     Indication: ANXIETY
  2. ZOLOFT [Suspect]
     Indication: DEPRESSION
  3. KLONOPIN [Concomitant]
  4. PRILOSEC [Concomitant]

REACTIONS (6)
  - ANXIETY [None]
  - DRUG INEFFECTIVE [None]
  - INFECTION [None]
  - NAUSEA [None]
  - NERVOUSNESS [None]
  - ULCER [None]
